FAERS Safety Report 26204908 (Version 1)
Quarter: 2025Q4

REPORT INFORMATION
  Report Type: Spontaneous
  Country: CN (occurrence: CN)
  Receive Date: 20251227
  Receipt Date: 20251227
  Transmission Date: 20260117
  Serious: Yes (Death, Hospitalization, Other)
  Sender: AMGEN
  Company Number: CN-AMGEN-CHNSP2025250570

PATIENT

DRUGS (2)
  1. PROLIA [Suspect]
     Active Substance: DENOSUMAB
     Indication: Osteoporosis
     Dosage: UNK
     Route: 065
  2. VITAMIN D [Suspect]
     Active Substance: VITAMIN D NOS
     Indication: Osteoporosis
     Dosage: UNK
     Route: 065

REACTIONS (200)
  - Death [Fatal]
  - Unevaluable event [Unknown]
  - Bone giant cell tumour benign [Unknown]
  - Femur fracture [Unknown]
  - Thoracic vertebral fracture [Unknown]
  - Acute kidney injury [Unknown]
  - Hypokalaemia [Unknown]
  - Electrocardiogram QT prolonged [Unknown]
  - Hypothyroidism [Unknown]
  - Spinal fracture [Unknown]
  - Tooth extraction [Unknown]
  - Compression fracture [Unknown]
  - Osteonecrosis of jaw [Unknown]
  - Renal impairment [Unknown]
  - Lumbar vertebral fracture [Unknown]
  - Parathyroidectomy [Unknown]
  - Osteomyelitis [Unknown]
  - Femoral neck fracture [Unknown]
  - Acetabulum fracture [Unknown]
  - Osteonecrosis [Unknown]
  - Atypical femur fracture [Unknown]
  - Hip fracture [Unknown]
  - Abscess jaw [Unknown]
  - Erysipelas [Unknown]
  - Knee arthroplasty [Unknown]
  - Dental implantation [Unknown]
  - Hip arthroplasty [Unknown]
  - Endodontic procedure [Unknown]
  - Cataract operation [Unknown]
  - Jaw operation [Unknown]
  - Artificial crown procedure [Unknown]
  - Terminal state [Unknown]
  - Breast cancer metastatic [Unknown]
  - Metastases to lung [Unknown]
  - Metastasis [Unknown]
  - Prostate cancer metastatic [Unknown]
  - Metastases to spine [Unknown]
  - Breast cancer recurrent [Unknown]
  - Metastases to meninges [Unknown]
  - Dental care [Unknown]
  - Bone graft [Unknown]
  - Nephrolithiasis [Unknown]
  - Nephrocalcinosis [Unknown]
  - Renal atrophy [Unknown]
  - Spinal cord disorder [Unknown]
  - Spinal cord compression [Unknown]
  - Hypocalcaemic seizure [Unknown]
  - Demyelinating polyneuropathy [Unknown]
  - Sudden hearing loss [Unknown]
  - Immobile [Unknown]
  - Macular degeneration [Unknown]
  - Device loosening [Unknown]
  - Thyroid neoplasm [Unknown]
  - Ulna fracture [Unknown]
  - Tooth deposit [Unknown]
  - Blood albumin abnormal [Unknown]
  - Paraesthesia oral [Unknown]
  - Myalgia [Unknown]
  - Tooth disorder [Unknown]
  - Impaired healing [Unknown]
  - Paraesthesia [Unknown]
  - Constipation [Unknown]
  - Rebound effect [Unknown]
  - Hypophosphataemia [Unknown]
  - Pollakiuria [Unknown]
  - Dysuria [Unknown]
  - Flatulence [Unknown]
  - Vitamin D deficiency [Unknown]
  - Joint stiffness [Unknown]
  - Stress [Unknown]
  - Urinary incontinence [Unknown]
  - Loss of personal independence in daily activities [Unknown]
  - Tetany [Unknown]
  - Hypomagnesaemia [Unknown]
  - Back pain [Unknown]
  - Muscle twitching [Unknown]
  - Osteitis [Unknown]
  - Blood glucose increased [Unknown]
  - Hyponatraemia [Unknown]
  - Eye pain [Unknown]
  - Dry eye [Unknown]
  - Scoliosis [Unknown]
  - Gastritis [Unknown]
  - Viral infection [Unknown]
  - Spinal osteoarthritis [Unknown]
  - Arthralgia [Unknown]
  - Pain in extremity [Unknown]
  - Hypocalcaemia [Unknown]
  - Bone pain [Unknown]
  - Muscle spasms [Unknown]
  - Pain in jaw [Unknown]
  - Gait disturbance [Unknown]
  - Musculoskeletal pain [Unknown]
  - Hypoaesthesia [Unknown]
  - Urinary tract infection [Unknown]
  - Mobility decreased [Unknown]
  - Bone density decreased [Unknown]
  - Blood calcium decreased [Unknown]
  - Toothache [Unknown]
  - Cystitis [Unknown]
  - Neck pain [Unknown]
  - Tooth fracture [Unknown]
  - Dry skin [Unknown]
  - Rash pruritic [Unknown]
  - Periostitis [Unknown]
  - Blood parathyroid hormone decreased [Unknown]
  - Forearm fracture [Unknown]
  - Gingivitis [Unknown]
  - Parathyroid disorder [Unknown]
  - Cystitis escherichia [Unknown]
  - Blood phosphorus decreased [Unknown]
  - Dental discomfort [Unknown]
  - Gingival pain [Unknown]
  - Bone fragmentation [Unknown]
  - Dental caries [Unknown]
  - Diaphragmalgia [Unknown]
  - Medial tibial stress syndrome [Unknown]
  - Arthritis [Unknown]
  - Osteoarthritis [Unknown]
  - Arthropathy [Unknown]
  - Bone disorder [Unknown]
  - Jaw disorder [Unknown]
  - Bone loss [Unknown]
  - Intervertebral disc protrusion [Unknown]
  - Musculoskeletal disorder [Unknown]
  - Muscle tightness [Unknown]
  - Fracture [Unknown]
  - Rib fracture [Unknown]
  - Foot fracture [Unknown]
  - Wrist fracture [Unknown]
  - Stress fracture [Unknown]
  - Upper limb fracture [Unknown]
  - Tooth loss [Unknown]
  - Mouth ulceration [Unknown]
  - Hypoaesthesia oral [Unknown]
  - Gingival disorder [Unknown]
  - Gingival bleeding [Unknown]
  - Gingival swelling [Unknown]
  - Oral disorder [Unknown]
  - Gingival recession [Unknown]
  - Oral discomfort [Unknown]
  - Cellulitis [Unknown]
  - Tooth infection [Unknown]
  - Periodontitis [Unknown]
  - Skin infection [Unknown]
  - Oral infection [Unknown]
  - Rash pustular [Unknown]
  - Pulpitis dental [Unknown]
  - Gingival abscess [Unknown]
  - Blood cholesterol increased [Unknown]
  - Blood calcium increased [Unknown]
  - Blood calcium abnormal [Unknown]
  - Blood magnesium decreased [Unknown]
  - Low density lipoprotein increased [Unknown]
  - Blood cholesterol abnormal [Unknown]
  - Facial pain [Unknown]
  - Calcinosis [Unknown]
  - Multimorbidity [Unknown]
  - Rash macular [Unknown]
  - Rash papular [Unknown]
  - Onychoclasis [Unknown]
  - Papule [Unknown]
  - Skin mass [Unknown]
  - Lichen planus [Unknown]
  - Macule [Unknown]
  - Rosacea [Unknown]
  - Exfoliative rash [Unknown]
  - Nail growth abnormal [Unknown]
  - Hypercalcaemia [Unknown]
  - Hyperlipidaemia [Unknown]
  - Calcium deficiency [Unknown]
  - Hyperphosphataemia [Unknown]
  - Underweight [Unknown]
  - Calcium metabolism disorder [Unknown]
  - Bladder disorder [Unknown]
  - Urinary tract disorder [Unknown]
  - Cystitis interstitial [Unknown]
  - Calculus urinary [Unknown]
  - Dysstasia [Unknown]
  - Nerve compression [Unknown]
  - Lumbar radiculopathy [Unknown]
  - Cervical radiculopathy [Unknown]
  - Sleep disorder due to a general medical condition [Unknown]
  - Bruxism [Unknown]
  - Ear discomfort [Unknown]
  - Ear disorder [Unknown]
  - Ear pruritus [Unknown]
  - Ear congestion [Unknown]
  - Ear swelling [Unknown]
  - Inner ear disorder [Unknown]
  - Hyperparathyroidism [Unknown]
  - Thyroid mass [Unknown]
  - Parathyroid disorder [Unknown]
  - Hyperparathyroidism primary [Unknown]
  - Parathyroid gland enlargement [Unknown]
  - Immune system disorder [Unknown]
  - Wheelchair user [Unknown]
  - Device failure [Unknown]
  - Lymphoedema [Unknown]
  - Off label use [Unknown]
